FAERS Safety Report 6406806-1 (Version None)
Quarter: 2009Q4

REPORT INFORMATION
  Report Type: 
  Country: None (occurrence: None)
  Receive Date: 20091020
  Receipt Date: 20091008
  Transmission Date: 20100525
  Serious: Yes (Death, Other)
  Sender: FDA-Public Use
  Company Number: JP-PFIZER INC-2009280141

PATIENT

DRUGS (2)
  1. UNASYN [Suspect]
     Route: 042
  2. VANCOMYCIN HYDROCHLORIDE [Concomitant]

REACTIONS (2)
  - DEATH [None]
  - HAEMORRHAGIC DIATHESIS [None]
